FAERS Safety Report 9334466 (Version 1)
Quarter: 2013Q2

REPORT INFORMATION
  Report Type: Spontaneous
  Country: US (occurrence: US)
  Receive Date: 20130606
  Receipt Date: 20130606
  Transmission Date: 20140414
  Serious: No
  Sender: FDA-Public Use
  Company Number: US-AMGEN-USASP2013008930

PATIENT
  Age: 75 Year
  Sex: Female
  Weight: 65.31 kg

DRUGS (5)
  1. PROLIA [Suspect]
     Indication: OSTEOPOROSIS
     Dosage: 60 MG, Q6MO
     Route: 030
     Dates: start: 20120309
  2. PROLIA [Suspect]
     Dosage: 60 MG, Q6MO
     Dates: start: 20120309
  3. SYNTHROID [Concomitant]
  4. ZOCOR [Concomitant]
  5. BABY ASPIRIN [Concomitant]

REACTIONS (3)
  - Loose tooth [Not Recovered/Not Resolved]
  - Tooth disorder [Not Recovered/Not Resolved]
  - Pain in jaw [Not Recovered/Not Resolved]
